FAERS Safety Report 23202948 (Version 5)
Quarter: 2024Q1

REPORT INFORMATION
  Report Type: Spontaneous
  Country: IT (occurrence: IT)
  Receive Date: 20231120
  Receipt Date: 20240102
  Transmission Date: 20240410
  Serious: Yes (Hospitalization)
  Sender: FDA-Public Use
  Company Number: IT-SANDOZ-SDZ2023IT055547

PATIENT
  Age: 73 Year
  Sex: Male
  Weight: 68 kg

DRUGS (7)
  1. PEMETREXED DISODIUM [Suspect]
     Active Substance: PEMETREXED DISODIUM
     Indication: Lung neoplasm malignant
     Dosage: DOSAGGIO: 700UNITA DI MISURA: MILLIGRAMMIFREQUENZA SOMMINISTRAZIONE: CICLICAVIA SOMMINISTRAZIONE: EN
     Route: 042
     Dates: start: 20230704, end: 20230704
  2. CARBOPLATIN [Concomitant]
     Active Substance: CARBOPLATIN
     Indication: Lung neoplasm malignant
     Dosage: DOSAGGIO: 280UNITA DI MISURA: MILLIGRAMMIVIA SOMMINISTRAZIONE: ENDOVENOSA
     Route: 042
     Dates: start: 20230704, end: 20230704
  3. CRESTOR [Concomitant]
     Active Substance: ROSUVASTATIN CALCIUM
     Indication: Prophylaxis
     Dosage: DOSAGGIO: 10UNITA DI MISURA: MILLIGRAMMIVIA SOMMINISTRAZIONE: ORALE
     Route: 048
  4. DECADRON [Concomitant]
     Active Substance: DEXAMETHASONE
     Indication: Product used for unknown indication
     Dosage: VIA SOMMINISTRAZIONE: ORALE
     Route: 048
  5. DIAMICRON [Concomitant]
     Indication: Insulin-requiring type 2 diabetes mellitus
     Dosage: DOSAGGIO: 80UNITA DI MISURA: MILLIGRAMMIVIA SOMMINISTRAZIONE: ORALE
     Route: 048
  6. KROVANEG [Concomitant]
     Indication: Gastrointestinal disorder
     Dosage: DOSAGGIO: 30UNITA DI MISURA: MILLIGRAMMIVIA SOMMINISTRAZIONE: ORALE
     Route: 048
  7. LEVETIRACETAM [Concomitant]
     Active Substance: LEVETIRACETAM
     Indication: Epilepsy
     Dosage: DOSAGGIO: 1000UNITA DI MISURA: MILLIGRAMMIVIA SOMMINISTRAZIONE: ORALE
     Route: 048

REACTIONS (5)
  - Asthenia [Recovered/Resolved]
  - Febrile neutropenia [Recovered/Resolved]
  - Diarrhoea [Recovered/Resolved]
  - Pyrexia [Recovered/Resolved]
  - Acute kidney injury [Recovered/Resolved]

NARRATIVE: CASE EVENT DATE: 20230707
